FAERS Safety Report 6375672-5 (Version None)
Quarter: 2009Q3

REPORT INFORMATION
  Report Type: 
  Country: None (occurrence: None)
  Receive Date: 20090921
  Receipt Date: 20090916
  Transmission Date: 20100115
  Serious: Yes (Hospitalization)
  Sender: FDA-Public Use
  Company Number: 1000008898

PATIENT
  Sex: Female

DRUGS (1)
  1. SAVELLA [Suspect]
     Dosage: 12,5 MG (12.5 MG, 1 IN 1 D), ORAL
     Route: 048
     Dates: start: 20090915, end: 20090915

REACTIONS (1)
  - MYOCARDIAL INFARCTION [None]
